FAERS Safety Report 5603330-0 (Version None)
Quarter: 2008Q1

REPORT INFORMATION
  Report Type: 
  Country: None (occurrence: None)
  Receive Date: 20080122
  Receipt Date: 20080107
  Transmission Date: 20080703
  Serious: Yes (Other)
  Sender: FDA-Public Use
  Company Number: 2008AL000204

PATIENT
  Age: 45 Year
  Sex: Male

DRUGS (11)
  1. DICLOFENAC [Suspect]
     Indication: ANALGESIA
     Dosage: 75 MG;QD;IV
     Route: 042
     Dates: start: 20071214, end: 20071214
  2. THIOPENTONE [Concomitant]
  3. SUXAMETHONIUM [Concomitant]
  4. FENTANYL [Concomitant]
  5. ONDANSETRON [Concomitant]
  6. MORPHINE [Concomitant]
  7. CEFUROXIME [Concomitant]
  8. METRONIDAZOLE HCL [Concomitant]
  9. NEOSTIGMINE [Concomitant]
  10. PARACETAMOL [Concomitant]
  11. GLYCOPYRROLATE [Concomitant]

REACTIONS (1)
  - SWOLLEN TONGUE [None]
